FAERS Safety Report 18081355 (Version 1)
Quarter: 2020Q3

REPORT INFORMATION
  Report Type: Report from Study
  Country: US (occurrence: US)
  Receive Date: 20200728
  Receipt Date: 20200728
  Transmission Date: 20201103
  Serious: Yes (Hospitalization)
  Sender: FDA-Public Use
  Company Number: US-VERASTEM-2019-00049

PATIENT

DRUGS (1)
  1. IPI?145 [Suspect]
     Active Substance: DUVELISIB
     Indication: ANGIOIMMUNOBLASTIC T-CELL LYMPHOMA
     Dosage: 75 MG, BID
     Route: 048
     Dates: start: 20190109, end: 20190326

REACTIONS (3)
  - Diarrhoea [Recovered/Resolved]
  - Respiratory failure [Recovered/Resolved]
  - Influenza [Recovered/Resolved]

NARRATIVE: CASE EVENT DATE: 20190326
